FAERS Safety Report 12283988 (Version 1)
Quarter: 2016Q2

REPORT INFORMATION
  Report Type: Spontaneous
  Country: GB (occurrence: GB)
  Receive Date: 20160419
  Receipt Date: 20160419
  Transmission Date: 20160815
  Serious: Yes (Life-Threatening, Hospitalization, Disabling)
  Sender: FDA-Public Use
  Company Number: GB-ASTRAZENECA-2016SE38835

PATIENT
  Age: 53 Year
  Sex: Female
  Weight: 85 kg

DRUGS (17)
  1. TICAGRELOR [Suspect]
     Active Substance: TICAGRELOR
     Indication: ACUTE MYOCARDIAL INFARCTION
     Dosage: 180MG LOADING DOSE THEN 90MG TWICE DAILY
     Route: 048
     Dates: start: 20160319, end: 20160322
  2. ATORVASTATIN [Concomitant]
     Active Substance: ATORVASTATIN
     Indication: ACUTE MYOCARDIAL INFARCTION
  3. BISOPROLOL [Concomitant]
     Active Substance: BISOPROLOL
  4. CETRABEN EMOLLIENT CREAM [Concomitant]
  5. MAGNESIUM ASPARTATE [Concomitant]
     Active Substance: MAGNESIUM ASPARTATE
  6. CITALOPRAM [Concomitant]
     Active Substance: CITALOPRAM HYDROBROMIDE
  7. DIAMORPHINE [Concomitant]
     Active Substance: DIACETYLMORPHINE
     Indication: ANGINA PECTORIS
     Dates: end: 20160323
  8. GLYCERYL TRINITRATE [Concomitant]
     Active Substance: NITROGLYCERIN
  9. PARACETAMOL [Concomitant]
     Active Substance: ACETAMINOPHEN
     Indication: ANALGESIC THERAPY
  10. FONDAPARINUX [Suspect]
     Active Substance: FONDAPARINUX
     Indication: ACUTE CORONARY SYNDROME
     Route: 058
     Dates: start: 20160320, end: 20160323
  11. METOCLOPRAMIDE. [Concomitant]
     Active Substance: METOCLOPRAMIDE
  12. ELIQUIS [Suspect]
     Active Substance: APIXABAN
     Indication: CEREBROVASCULAR ACCIDENT PROPHYLAXIS
     Route: 048
     Dates: start: 20160322, end: 20160323
  13. RAMIPRIL. [Concomitant]
     Active Substance: RAMIPRIL
     Indication: ACUTE LEFT VENTRICULAR FAILURE
  14. ASPIRIN. [Suspect]
     Active Substance: ASPIRIN
     Indication: ACUTE MYOCARDIAL INFARCTION
     Dosage: 300MG ONCE DAILY LOADING DOSE THEN 75MG ONCE DAILY
     Route: 048
     Dates: start: 20160319, end: 20160322
  15. AMOXICILLIN. [Concomitant]
     Active Substance: AMOXICILLIN
     Dates: start: 20160302, end: 20160306
  16. FUROSEMIDE. [Concomitant]
     Active Substance: FUROSEMIDE
  17. SALBUTAMOL [Concomitant]
     Active Substance: ALBUTEROL

REACTIONS (2)
  - Atrial fibrillation [Unknown]
  - Cerebral haemorrhage [Unknown]

NARRATIVE: CASE EVENT DATE: 20160322
